FAERS Safety Report 8594281-0 (Version None)
Quarter: 2012Q3

REPORT INFORMATION
  Report Type: 
  Country: None (occurrence: None)
  Receive Date: 20120815
  Receipt Date: 20120724
  Transmission Date: 20120928
  Serious: No
  Sender: FDA-Public Use
  Company Number: US-009507513-1207USA009874

PATIENT

DRUGS (1)
  1. TEMODAR [Suspect]
     Indication: BRAIN NEOPLASM MALIGNANT
     Dosage: 100 MG, TID
     Route: 048
     Dates: start: 20120501

REACTIONS (2)
  - SKIN BURNING SENSATION [None]
  - SKIN EXFOLIATION [None]
